FAERS Safety Report 17766826 (Version 8)
Quarter: 2025Q1

REPORT INFORMATION
  Report Type: Spontaneous
  Country: PL (occurrence: PL)
  Receive Date: 20200511
  Receipt Date: 20250324
  Transmission Date: 20250409
  Serious: Yes (Death, Disabling, Other)
  Sender: MYLAN
  Company Number: PL-TAKEDA-2020TEU002919

PATIENT
  Age: 61 Year
  Sex: Male

DRUGS (49)
  1. FENTANYL [Suspect]
     Active Substance: FENTANYL
     Indication: Cancer pain
  2. FENTANYL [Suspect]
     Active Substance: FENTANYL
     Indication: Pain
  3. GABAPENTIN [Suspect]
     Active Substance: GABAPENTIN
     Indication: Pain in extremity
     Dosage: 0.3 GRAM, TID (0.3 G, 3X/DAY)
     Dates: start: 201603
  4. GABAPENTIN [Suspect]
     Active Substance: GABAPENTIN
     Indication: Pain
  5. GABAPENTIN [Suspect]
     Active Substance: GABAPENTIN
  6. GABAPENTIN [Suspect]
     Active Substance: GABAPENTIN
     Dosage: 900 MILLIGRAM, QD
  7. GABAPENTIN [Suspect]
     Active Substance: GABAPENTIN
     Dosage: 150 MILLIGRAM, QD
     Dates: start: 2014
  8. TRAMADOL [Suspect]
     Active Substance: TRAMADOL
     Indication: Pain
  9. DOCETAXEL [Suspect]
     Active Substance: DOCETAXEL
     Indication: Chemotherapy
  10. DOCETAXEL [Suspect]
     Active Substance: DOCETAXEL
     Indication: Hormone-refractory prostate cancer
  11. DOCETAXEL [Suspect]
     Active Substance: DOCETAXEL
     Indication: Prostate cancer
  12. ACETAMINOPHEN\TRAMADOL [Suspect]
     Active Substance: ACETAMINOPHEN\TRAMADOL
     Indication: Analgesic therapy
  13. ACETAMINOPHEN\TRAMADOL [Suspect]
     Active Substance: ACETAMINOPHEN\TRAMADOL
  14. ACETAMINOPHEN [Suspect]
     Active Substance: ACETAMINOPHEN
     Indication: Pain
  15. BICALUTAMIDE [Suspect]
     Active Substance: BICALUTAMIDE
     Indication: Prostate cancer
     Dosage: 50 MILLIGRAM, QD, 50 MG, PER DAY
     Dates: start: 201603
  16. FENTANYL [Suspect]
     Active Substance: FENTANYL
     Indication: Cancer pain
     Dosage: 50 MICROGRAM, Q3D
     Dates: start: 2016, end: 2016
  17. FENTANYL [Suspect]
     Active Substance: FENTANYL
     Indication: Pain
     Dosage: Q3D (50 MICROGRAM/H EVERY 3 DAYS)
     Dates: start: 201603
  18. FENTANYL [Suspect]
     Active Substance: FENTANYL
     Dosage: Q3D (50 MG/H, EVERY 3 DAYS)
     Dates: start: 2016, end: 2016
  19. FENTANYL [Suspect]
     Active Substance: FENTANYL
     Dosage: Q3D (200 MG/H, EVERY 3 DAYS)
  20. FENTANYL [Suspect]
     Active Substance: FENTANYL
  21. FENTANYL [Suspect]
     Active Substance: FENTANYL
     Dosage: 200 MICROGRAM, QD
  22. FENTANYL [Suspect]
     Active Substance: FENTANYL
     Dosage: 50 MICROGRAM, QD
     Dates: start: 201603
  23. KETOPROFEN [Suspect]
     Active Substance: KETOPROFEN
     Indication: Pain
     Dosage: 200 MILLIGRAM, QD (100 MILLIGRAM, BID)
     Dates: start: 201605
  24. KETOPROFEN [Suspect]
     Active Substance: KETOPROFEN
     Dosage: 200 MILLIGRAM, QD
  25. KETOPROFEN [Suspect]
     Active Substance: KETOPROFEN
     Dosage: 100 MILLIGRAM, BID
     Dates: start: 201603
  26. MORPHINE SULFATE [Suspect]
     Active Substance: MORPHINE SULFATE
     Indication: Pain
     Dosage: 0.02 G, 4X PER DAY, (FAST-RELEASE)
     Dates: start: 201603
  27. MORPHINE SULFATE [Suspect]
     Active Substance: MORPHINE SULFATE
     Indication: Cancer pain
  28. DICLOFENAC [Suspect]
     Active Substance: DICLOFENAC
     Indication: Pain
     Dosage: 100 MILLIGRAM, BID
     Dates: start: 201401
  29. LEUPROLIDE ACETATE [Suspect]
     Active Substance: LEUPROLIDE ACETATE
     Indication: Hormone therapy
  30. LEUPROLIDE ACETATE [Suspect]
     Active Substance: LEUPROLIDE ACETATE
     Indication: Prostate cancer
     Dosage: UNK, Q3MONTHS
  31. DENOSUMAB [Suspect]
     Active Substance: DENOSUMAB
     Indication: Prostate cancer
     Dosage: 120 MILLIGRAM, Q28D
     Dates: start: 201603
  32. PREGABALIN [Concomitant]
     Active Substance: PREGABALIN
     Indication: Product used for unknown indication
     Dosage: 0.075 G, 2X PER DAY, (1-0-1)
  33. PREGABALIN [Concomitant]
     Active Substance: PREGABALIN
     Dosage: 0.15 GRAM, BID 1-0-1
  34. PREGABALIN [Concomitant]
     Active Substance: PREGABALIN
     Dosage: 0.15 GRAM, QD
  35. IRON [Concomitant]
     Active Substance: IRON
     Indication: Product used for unknown indication
  36. TAPENTADOL [Concomitant]
     Active Substance: TAPENTADOL
     Indication: Product used for unknown indication
  37. TAPENTADOL [Concomitant]
     Active Substance: TAPENTADOL
     Dosage: 0.05 G, 2X PER DAY (SLOW-RELEASE)
  38. TAPENTADOL [Concomitant]
     Active Substance: TAPENTADOL
  39. TAPENTADOL [Concomitant]
     Active Substance: TAPENTADOL
  40. NIMESULIDE [Concomitant]
     Active Substance: NIMESULIDE
     Indication: Product used for unknown indication
     Dosage: BID, 1-0-1
  41. METAMIZOLE [Concomitant]
     Active Substance: METAMIZOLE
     Indication: Product used for unknown indication
  42. DEXKETOPROFEN [Concomitant]
     Active Substance: DEXKETOPROFEN
     Indication: Product used for unknown indication
  43. ABIRATERONE [Concomitant]
     Active Substance: ABIRATERONE
     Indication: Product used for unknown indication
  44. VITAMIN D3 [Concomitant]
     Active Substance: CHOLECALCIFEROL
     Indication: Product used for unknown indication
     Dosage: 4000 INTERNATIONAL UNIT, QD
     Dates: start: 201603
  45. VITAMIN D3 [Concomitant]
     Active Substance: CHOLECALCIFEROL
  46. VITAMIN D3 [Concomitant]
     Active Substance: CHOLECALCIFEROL
  47. MORPHINE [Concomitant]
     Active Substance: MORPHINE
     Indication: Cancer pain
  48. MORPHINE [Concomitant]
     Active Substance: MORPHINE
     Indication: Pain
     Dosage: 0.08 GRAM, QD
     Dates: start: 201603
  49. MORPHINE [Concomitant]
     Active Substance: MORPHINE
     Dosage: 0.02 GRAM, QID
     Dates: start: 201603

REACTIONS (21)
  - Constipation [Fatal]
  - Decreased appetite [Fatal]
  - Chronic kidney disease [Fatal]
  - Confusional state [Fatal]
  - Quality of life decreased [Fatal]
  - Polyneuropathy [Fatal]
  - Allodynia [Fatal]
  - Dermatitis allergic [Fatal]
  - Polyneuropathy in malignant disease [Fatal]
  - Drug ineffective [Fatal]
  - Toxicity to various agents [Recovered/Resolved]
  - Metastases to lung [Unknown]
  - Metastases to bone [Unknown]
  - Anaemia [Unknown]
  - Hyperaesthesia [Recovered/Resolved]
  - Drug dependence [Recovered/Resolved]
  - Product use in unapproved indication [Unknown]
  - Prostate cancer [Unknown]
  - Malignant neoplasm progression [Unknown]
  - Neuropathy peripheral [Not Recovered/Not Resolved]
  - Pain [Unknown]

NARRATIVE: CASE EVENT DATE: 20160101
